FAERS Safety Report 8428177-1 (Version None)
Quarter: 2012Q2

REPORT INFORMATION
  Report Type: 
  Country: None (occurrence: None)
  Receive Date: 20120611
  Receipt Date: 20120605
  Transmission Date: 20120825
  Serious: Yes (Other)
  Sender: FDA-Public Use
  Company Number: US-PFIZER INC-2012136093

PATIENT
  Sex: Female

DRUGS (1)
  1. CORTEF [Suspect]
     Indication: ADRENAL INSUFFICIENCY
     Dosage: 10 MG, UNK

REACTIONS (2)
  - ADRENAL INSUFFICIENCY [None]
  - DRUG INEFFECTIVE [None]
